FAERS Safety Report 8185818-4 (Version None)
Quarter: 2012Q1

REPORT INFORMATION
  Report Type: 
  Country: None (occurrence: None)
  Receive Date: 20120305
  Receipt Date: 20120229
  Transmission Date: 20120608
  Serious: Yes (Hospitalization)
  Sender: FDA-Public Use
  Company Number: CO-PFIZER INC-2012054249

PATIENT
  Sex: Male

DRUGS (6)
  1. LOSARTAN [Concomitant]
  2. SUTENT [Suspect]
     Indication: LUNG NEOPLASM MALIGNANT
     Dosage: 50 MG, 1X/DAY
     Route: 048
     Dates: start: 20120204, end: 20120222
  3. METOPROLOL [Concomitant]
  4. PRAZOSIN [Concomitant]
  5. INSULIN [Concomitant]
  6. TIMOLOL [Concomitant]

REACTIONS (2)
  - GENITAL INJURY [None]
  - LACERATION [None]
